FAERS Safety Report 18142956 (Version 1)
Quarter: 2020Q3

REPORT INFORMATION
  Report Type: Spontaneous
  Country: US (occurrence: US)
  Receive Date: 20200812
  Receipt Date: 20200812
  Transmission Date: 20201103
  Serious: No
  Sender: FDA-Public Use
  Company Number: US-ALKERMES INC.-ALK-2020-003206

PATIENT
  Sex: Male

DRUGS (2)
  1. VIVITROL [Suspect]
     Active Substance: NALTREXONE
     Indication: DRUG DEPENDENCE
     Dosage: 380 MILLIGRAM, QMO
     Route: 030
  2. VIVITROL [Suspect]
     Active Substance: NALTREXONE
     Indication: ALCOHOLISM
     Dosage: 380 MILLIGRAM, QMO
     Route: 030
     Dates: start: 2020

REACTIONS (14)
  - Euphoric mood [Unknown]
  - Injection site reaction [Unknown]
  - Drug abuse [Unknown]
  - Alcoholism [Unknown]
  - Abnormal behaviour [Unknown]
  - Patient elopement [Unknown]
  - Imprisonment [Recovered/Resolved]
  - Injection site pain [Unknown]
  - Injection site discomfort [Unknown]
  - Mydriasis [Unknown]
  - Vomiting [Unknown]
  - Drug dependence [Unknown]
  - Drug screen positive [Recovered/Resolved]
  - Amnesia [Unknown]
